FAERS Safety Report 21915922 (Version 1)
Quarter: 2023Q1

REPORT INFORMATION
  Report Type: Spontaneous
  Country: US (occurrence: None)
  Receive Date: 20230125
  Receipt Date: 20230125
  Transmission Date: 20230418
  Serious: Yes (Other)
  Sender: FDA-Public Use
  Company Number: None

PATIENT
  Age: 57 Year
  Sex: Female
  Weight: 82.35 kg

DRUGS (1)
  1. ENBREL [Suspect]
     Active Substance: ETANERCEPT
     Indication: Rheumatoid arthritis
     Dosage: OTHER FREQUENCY : ONCE WEEKLY;?
     Route: 058
     Dates: start: 20230108, end: 20230123

REACTIONS (5)
  - Diarrhoea [None]
  - Weight decreased [None]
  - Blood alkaline phosphatase increased [None]
  - Diarrhoea haemorrhagic [None]
  - Steatorrhoea [None]

NARRATIVE: CASE EVENT DATE: 20230116
